FAERS Safety Report 4802370-9 (Version None)
Quarter: 2005Q4

REPORT INFORMATION
  Report Type: 
  Country: None (occurrence: None)
  Receive Date: 20051014
  Receipt Date: 20040826
  Transmission Date: 20060501
  Serious: Yes (Other)
  Sender: FDA-Public Use
  Company Number: 2004058987

PATIENT
  Age: 60 Year
  Sex: Female
  Weight: 69.8539 kg

DRUGS (2)
  1. NEURONTIN [Suspect]
     Indication: ILL-DEFINED DISORDER
     Dosage: ORAL
     Route: 048
     Dates: start: 20040311, end: 20040601
  2. CELECOXIB (CELECOXIB) [Concomitant]

REACTIONS (3)
  - BREAST CANCER [None]
  - DEPRESSION [None]
  - DRUG INEFFECTIVE [None]
